FAERS Safety Report 19088224 (Version 1)
Quarter: 2021Q2

REPORT INFORMATION
  Report Type: Spontaneous
  Country: GB (occurrence: GB)
  Receive Date: 20210402
  Receipt Date: 20210402
  Transmission Date: 20210717
  Serious: Yes (Disabling, Other)
  Sender: FDA-Public Use
  Company Number: GB-ALLERGAN-2113720US

PATIENT
  Sex: Female
  Weight: 56.69 kg

DRUGS (5)
  1. PROPRANOLOL [Concomitant]
     Active Substance: PROPRANOLOL HYDROCHLORIDE
  2. SERTRALINE [Concomitant]
     Active Substance: SERTRALINE HYDROCHLORIDE
  3. FLUOROMETHOLONE UNK [Suspect]
     Active Substance: FLUOROMETHOLONE
     Indication: OCULAR SURFACE DISEASE
     Dosage: 1 DF, TID
     Route: 047
     Dates: start: 20210318, end: 20210318
  4. DIAZEPAM. [Concomitant]
     Active Substance: DIAZEPAM
  5. OMEPRAZOLE. [Concomitant]
     Active Substance: OMEPRAZOLE

REACTIONS (2)
  - Burning sensation [Not Recovered/Not Resolved]
  - Pain [Not Recovered/Not Resolved]

NARRATIVE: CASE EVENT DATE: 20210318
